FAERS Safety Report 9109185 (Version 2)
Quarter: 2013Q1

REPORT INFORMATION
  Report Type: Spontaneous
  Country: BR (occurrence: BR)
  Receive Date: 20130222
  Receipt Date: 20130328
  Transmission Date: 20140127
  Serious: Yes (Death, Hospitalization, Other)
  Sender: FDA-Public Use
  Company Number: PHHY2013BR017335

PATIENT
  Age: 92 Year
  Sex: Male
  Weight: 80 kg

DRUGS (5)
  1. EXELON [Suspect]
     Dosage: UNK
  2. ALENIA [Concomitant]
     Indication: DYSPNOEA
  3. AAS [Concomitant]
     Indication: CARDIOVASCULAR INSUFFICIENCY
     Dosage: 2 DF, DAILY
     Route: 048
  4. OMEPRAZOLE [Concomitant]
     Indication: HIATUS HERNIA
     Dosage: 2 DF, DAILY
     Route: 048
  5. MOTILIUM//DOMPERIDONE [Concomitant]
     Indication: ABDOMINAL DISCOMFORT
     Dosage: 2 DF, DAILY
     Route: 048

REACTIONS (3)
  - Respiratory arrest [Fatal]
  - Respiratory failure [Fatal]
  - Chronic obstructive pulmonary disease [Unknown]
